FAERS Safety Report 6629565-6 (Version None)
Quarter: 2010Q1

REPORT INFORMATION
  Report Type: 
  Country: None (occurrence: None)
  Receive Date: 20100311
  Receipt Date: 20100226
  Transmission Date: 20100710
  Serious: Yes (Hospitalization)
  Sender: FDA-Public Use
  Company Number: CA-ELI_LILLY_AND_COMPANY-CA200906003963

PATIENT
  Age: 88 Year
  Sex: Female

DRUGS (16)
  1. FORTEO [Suspect]
     Indication: OSTEOPOROSIS
     Dosage: 20 UG, DAILY (1/D)
     Route: 058
     Dates: start: 20090205
  2. GLUCONORM [Concomitant]
     Dosage: 3 MG, 3/D
     Route: 065
  3. FOLIC ACID [Concomitant]
     Dosage: UNK, DAILY (1/D)
     Route: 065
  4. DETROL LA [Concomitant]
     Dosage: UNK, DAILY (1/D)
     Route: 065
  5. ASAPHEN [Concomitant]
     Dosage: 80 MG, EACH MORNING
     Route: 065
  6. ARICEPT [Concomitant]
     Dosage: 10 MG, EACH EVENING
     Route: 065
  7. APO-RAMIPRIL [Concomitant]
     Dosage: 5 MG, DAILY (1/D)
     Route: 065
  8. SYNTHROID [Concomitant]
     Dosage: 0.075 MG, DAILY (1/D)
     Route: 065
  9. OXAZEPAM [Concomitant]
     Dosage: 15 MG, DAILY (1/D)
     Route: 065
  10. VITALUX [Concomitant]
     Dosage: UNK, 2/D
  11. PANTOPRAZOLE [Concomitant]
     Dosage: 40 MG, EACH MORNING
  12. PMS-GABAPENTIN [Concomitant]
     Dosage: 300 MG, DAILY (1/D)
  13. PMS-METOPROLOL-L [Concomitant]
     Dosage: UNK, 2/D
  14. LIPITOR [Concomitant]
     Dosage: 40 MG, DAILY (1/D)
  15. ISOSORBIDE MONONITRATE [Concomitant]
     Dosage: 60 MG, EACH MORNING
     Route: 065
  16. CALCIUM W/VITAMIN D /00188401/ [Concomitant]
     Dosage: UNK, 2/D

REACTIONS (6)
  - CONSTIPATION [None]
  - DIARRHOEA [None]
  - GASTROINTESTINAL INFECTION [None]
  - HEADACHE [None]
  - HYPOPHAGIA [None]
  - MALAISE [None]
